FAERS Safety Report 6448776-6 (Version None)
Quarter: 2009Q4

REPORT INFORMATION
  Report Type: 
  Country: None (occurrence: None)
  Receive Date: 20091120
  Receipt Date: 20091027
  Transmission Date: 20100525
  Serious: Yes (Hospitalization, Other)
  Sender: FDA-Public Use
  Company Number: PHHY2009JP45024

PATIENT
  Age: 52 Year
  Sex: Male

DRUGS (7)
  1. CYCLOSPORINE [Suspect]
     Indication: MYELODYSPLASTIC SYNDROME
     Dosage: UNK
     Dates: start: 20000901
  2. SANDIMMUNE [Suspect]
     Indication: STEM CELL TRANSPLANT
     Dosage: UNK
     Route: 042
     Dates: start: 20020401, end: 20020601
  3. PROGRAFT [Concomitant]
  4. METHOTREXATE [Concomitant]
     Indication: BONE MARROW TRANSPLANT
  5. BUSULPHAN [Concomitant]
     Indication: BONE MARROW TRANSPLANT
  6. CYCLOPHOSPHAMIDE [Concomitant]
     Indication: BONE MARROW TRANSPLANT
  7. METENOLONE [Concomitant]
     Indication: MYELODYSPLASTIC SYNDROME
     Dosage: UNK
     Dates: start: 19970901

REACTIONS (12)
  - ANAEMIA [None]
  - BONE MARROW TRANSPLANT [None]
  - CHOLESTASIS [None]
  - CHRONIC GRAFT VERSUS HOST DISEASE [None]
  - DRUG INEFFECTIVE [None]
  - GASTROINTESTINAL ENDOSCOPIC THERAPY [None]
  - MYELODYSPLASTIC SYNDROME [None]
  - OESOPHAGEAL CARCINOMA [None]
  - PANCYTOPENIA [None]
  - REFRACTORY CYTOPENIA WITH MULTILINEAGE DYSPLASIA [None]
  - THROMBOTIC MICROANGIOPATHY [None]
  - VENOOCCLUSIVE DISEASE [None]
